FAERS Safety Report 11688387 (Version 13)
Quarter: 2020Q4

REPORT INFORMATION
  Report Type: Spontaneous
  Country: US (occurrence: US)
  Receive Date: 20151031
  Receipt Date: 20201125
  Transmission Date: 20210113
  Serious: Yes (Other)
  Sender: FDA-Public Use
  Company Number: PHEH2015US022083

PATIENT
  Sex: Female
  Weight: 81.64 kg

DRUGS (2)
  1. ONDANSETRON HYDROCHLORIDE. [Suspect]
     Active Substance: ONDANSETRON HYDROCHLORIDE
     Indication: PRODUCT USED FOR UNKNOWN INDICATION
     Route: 048
  2. ZOFRAN ODT [Suspect]
     Active Substance: ONDANSETRON HYDROCHLORIDE
     Indication: MORNING SICKNESS
     Dosage: 8 MG, BID
     Route: 048
     Dates: start: 20071025, end: 2008

REACTIONS (11)
  - Appendicitis [Unknown]
  - Anhedonia [Unknown]
  - Product use in unapproved indication [Unknown]
  - Maternal exposure during pregnancy [Unknown]
  - Emotional distress [Unknown]
  - Anxiety [Unknown]
  - Product use issue [Unknown]
  - Pain [Unknown]
  - Pelvic pain [Unknown]
  - Abdominal pain [Unknown]
  - Dysuria [Unknown]
